FAERS Safety Report 11129682 (Version 1)
Quarter: 2015Q2

REPORT INFORMATION
  Report Type: Spontaneous
  Country: US (occurrence: US)
  Receive Date: 20150521
  Receipt Date: 20150521
  Transmission Date: 20150821
  Serious: No
  Sender: FDA-Public Use
  Company Number: US-MALLINCKRODT-QSC-2014-0312

PATIENT
  Sex: Female

DRUGS (5)
  1. MULTI-VITAMINS VITAFIT [Concomitant]
     Dosage: UNK
  2. BUMEX [Concomitant]
     Active Substance: BUMETANIDE
     Dosage: 0.5 MG, PRN
  3. H.P. ACTHAR [Suspect]
     Active Substance: CORTICOTROPIN
     Indication: FOCAL SEGMENTAL GLOMERULOSCLEROSIS
     Dosage: 80 UNITS, BIW
     Route: 058
     Dates: start: 20140331
  4. VITAMIN D [Concomitant]
     Active Substance: CHOLECALCIFEROL
     Dosage: UNK
  5. ATORVASTATIN [Concomitant]
     Active Substance: ATORVASTATIN
     Dosage: UNK

REACTIONS (4)
  - Fatigue [Recovering/Resolving]
  - Blood pressure decreased [Recovering/Resolving]
  - Energy increased [Recovered/Resolved]
  - Dizziness [Unknown]

NARRATIVE: CASE EVENT DATE: 2014
